FAERS Safety Report 25637766 (Version 1)
Quarter: 2025Q3

REPORT INFORMATION
  Report Type: Other
  Country: CA (occurrence: CA)
  Receive Date: 20250804
  Receipt Date: 20250804
  Transmission Date: 20251021
  Serious: Yes (Other)
  Sender: APOTEX
  Company Number: CA-PGRTD-001130730

PATIENT

DRUGS (2)
  1. DEXAMETHASONE [Suspect]
     Active Substance: DEXAMETHASONE
     Indication: Plasma cell myeloma refractory
     Route: 048
  2. LENALIDOMIDE [Suspect]
     Active Substance: LENALIDOMIDE
     Indication: Plasma cell myeloma refractory
     Route: 048

REACTIONS (5)
  - Chronic graft versus host disease in liver [Unknown]
  - Chronic graft versus host disease oral [Unknown]
  - Chronic graft versus host disease in skin [Unknown]
  - Plasma cell myeloma [Unknown]
  - Chronic graft versus host disease in eye [Unknown]
